FAERS Safety Report 15149167 (Version 1)
Quarter: 2018Q3

REPORT INFORMATION
  Report Type: Spontaneous
  Country: US (occurrence: US)
  Receive Date: 20180619
  Receipt Date: 20180619
  Transmission Date: 20181010
  Serious: Yes (Other)
  Sender: FDA-Public Use
  Company Number: None

PATIENT
  Age: 70 Year
  Sex: Male
  Weight: 97.65 kg

DRUGS (10)
  1. METFORMIN [Concomitant]
     Active Substance: METFORMIN HYDROCHLORIDE
  2. ONDANSETRON [Concomitant]
     Active Substance: ONDANSETRON
  3. LATANOPROST. [Concomitant]
     Active Substance: LATANOPROST
  4. NICOTINE POLACRILEX [Concomitant]
     Active Substance: NICOTINE
  5. DORZOLAMIDE [Concomitant]
     Active Substance: DORZOLAMIDE
  6. METOPROLOL. [Concomitant]
     Active Substance: METOPROLOL
  7. XARELTO [Concomitant]
     Active Substance: RIVAROXABAN
  8. SIMVASTATIN. [Concomitant]
     Active Substance: SIMVASTATIN
  9. CAPECITABINE. [Suspect]
     Active Substance: CAPECITABINE
     Indication: PANCREATIC CARCINOMA
     Route: 048
     Dates: start: 20180223, end: 20180618
  10. CARDIZEM [Concomitant]
     Active Substance: DILTIAZEM HYDROCHLORIDE

REACTIONS (2)
  - Stomatitis [None]
  - Cytopenia [None]
